FAERS Safety Report 8937228 (Version 1)
Quarter: 2012Q4

REPORT INFORMATION
  Report Type: Spontaneous
  Country: US (occurrence: None)
  Receive Date: 20121128
  Receipt Date: 20121128
  Transmission Date: 20130627
  Serious: Yes (Hospitalization)
  Sender: FDA-Public Use
  Company Number: None

PATIENT
  Age: 60 Year
  Sex: Male

DRUGS (2)
  1. HERBS (UNSPECIFIED INGREDIENT) [Suspect]
     Indication: MALARIA PROPHYLAXIS
     Dosage: 4 tabs qday po
     Dates: start: 20121031, end: 20121117
  2. ECHINACEA LIKE DRUG [Suspect]

REACTIONS (5)
  - Chromaturia [None]
  - Jaundice [None]
  - Cholecystitis [None]
  - Cholelithiasis [None]
  - Hepatitis [None]
